FAERS Safety Report 5472673-6 (Version None)
Quarter: 2007Q4

REPORT INFORMATION
  Report Type: 
  Country: None (occurrence: None)
  Receive Date: 20071001
  Receipt Date: 20060901
  Transmission Date: 20080405
  Serious: Yes (Other)
  Sender: FDA-Public Use
  Company Number: US-ASTRAZENECA-2006UW17361

PATIENT
  Age: 75 Year
  Sex: Female
  Weight: 72.6 kg

DRUGS (4)
  1. ARIMIDEX [Suspect]
     Indication: BREAST CANCER FEMALE
     Route: 048
     Dates: start: 20060401
  2. FOLIC ACID [Concomitant]
  3. ADVIL LIQUI-GELS [Concomitant]
  4. MECLIZINE [Concomitant]

REACTIONS (2)
  - ANAEMIA [None]
  - HOT FLUSH [None]
